FAERS Safety Report 20774987 (Version 1)
Quarter: 2022Q2

REPORT INFORMATION
  Report Type: Spontaneous
  Country: US (occurrence: US)
  Receive Date: 20220502
  Receipt Date: 20220502
  Transmission Date: 20220721
  Serious: Yes (Other)
  Sender: FDA-Public Use
  Company Number: US-UCBSA-2022023954

PATIENT
  Age: 39 Year
  Sex: Female

DRUGS (4)
  1. KEPPRA [Suspect]
     Active Substance: LEVETIRACETAM
     Indication: Rotator cuff syndrome
     Dosage: UNK
     Dates: start: 202203
  2. KEPPRA [Suspect]
     Active Substance: LEVETIRACETAM
     Indication: Myoclonus
  3. KLONOPIN [Suspect]
     Active Substance: CLONAZEPAM
     Indication: Rotator cuff syndrome
     Dosage: UNK
     Dates: start: 202203
  4. KLONOPIN [Suspect]
     Active Substance: CLONAZEPAM
     Indication: Myoclonus

REACTIONS (2)
  - Feeling abnormal [Unknown]
  - Product use in unapproved indication [Unknown]

NARRATIVE: CASE EVENT DATE: 20220301
